FAERS Safety Report 9068408 (Version 1)
Quarter: 2013Q1

REPORT INFORMATION
  Report Type: Spontaneous
  Country: US (occurrence: None)
  Receive Date: 20130212
  Receipt Date: 20130212
  Transmission Date: 20140127
  Serious: Yes (Other)
  Sender: FDA-Public Use
  Company Number: None

PATIENT
  Age: 77 Year
  Sex: Female
  Weight: 60.78 kg

DRUGS (1)
  1. CYMBALTA 30MG NOT KNOWN [Suspect]
     Indication: FIBROMYALGIA
     Route: 048
     Dates: start: 20100101, end: 20130201

REACTIONS (13)
  - Emotional disorder [None]
  - Irritability [None]
  - Memory impairment [None]
  - Speech disorder [None]
  - Nausea [None]
  - Dizziness [None]
  - Headache [None]
  - Abdominal discomfort [None]
  - Flatulence [None]
  - Pain [None]
  - Diarrhoea [None]
  - Withdrawal syndrome [None]
  - Bradyphrenia [None]
